FAERS Safety Report 22044100 (Version 1)
Quarter: 2023Q1

REPORT INFORMATION
  Report Type: Spontaneous
  Country: CO (occurrence: CO)
  Receive Date: 20230228
  Receipt Date: 20230228
  Transmission Date: 20230417
  Serious: Yes (Hospitalization)
  Sender: FDA-Public Use
  Company Number: CO-JNJFOC-20230245772

PATIENT
  Age: 66 Year
  Sex: Male

DRUGS (6)
  1. RISPERDAL CONSTA [Suspect]
     Active Substance: RISPERIDONE
     Indication: Product used for unknown indication
     Route: 042
  2. RISPERDAL CONSTA [Suspect]
     Active Substance: RISPERIDONE
  3. RISPERDAL CONSTA [Suspect]
     Active Substance: RISPERIDONE
  4. RISPERDAL CONSTA [Suspect]
     Active Substance: RISPERIDONE
  5. RISPERIDONE [Concomitant]
     Active Substance: RISPERIDONE
     Route: 065
  6. LEVOMEPROMAZINE [Concomitant]
     Active Substance: LEVOMEPROMAZINE

REACTIONS (4)
  - Ataxia [Unknown]
  - Off label use [Unknown]
  - Anxiety [Unknown]
  - Sedation [Unknown]

NARRATIVE: CASE EVENT DATE: 20230204
